FAERS Safety Report 10392105 (Version 1)
Quarter: 2014Q3

REPORT INFORMATION
  Report Type: Spontaneous
  Country: US (occurrence: US)
  Receive Date: 20140819
  Receipt Date: 20140819
  Transmission Date: 20150326
  Serious: No
  Sender: FDA-Public Use
  Company Number: US-BIOGENIDEC-2014BI080746

PATIENT
  Sex: Female

DRUGS (1)
  1. AVONEX [Suspect]
     Active Substance: INTERFERON BETA-1A
     Indication: MULTIPLE SCLEROSIS
     Route: 030
     Dates: start: 19981001, end: 20000101

REACTIONS (4)
  - Fall [Recovered/Resolved]
  - Blood cholesterol increased [Not Recovered/Not Resolved]
  - Hypoaesthesia [Recovered/Resolved]
  - Paralysis [Recovered/Resolved]
